FAERS Safety Report 14549429 (Version 2)
Quarter: 2018Q2

REPORT INFORMATION
  Report Type: Other
  Country: CA (occurrence: CA)
  Receive Date: 20180219
  Receipt Date: 20180422
  Transmission Date: 20180711
  Serious: Yes (Congenital Anomaly, Other)
  Sender: FDA-Public Use
  Company Number: CA-APOTEX-2018AP006500

PATIENT
  Age: 10 Year
  Sex: Female

DRUGS (1)
  1. AMIODARONE [Suspect]
     Active Substance: AMIODARONE
     Indication: CARDIAC DISORDER
     Route: 064

REACTIONS (3)
  - Maternal exposure during pregnancy [Unknown]
  - Learning disability [Unknown]
  - Congenital hypothyroidism [Unknown]
